FAERS Safety Report 15942565 (Version 3)
Quarter: 2019Q2

REPORT INFORMATION
  Report Type: Spontaneous
  Country: US (occurrence: US)
  Receive Date: 20190209
  Receipt Date: 20190506
  Transmission Date: 20190711
  Serious: Yes (Other)
  Sender: FDA-Public Use
  Company Number: US-ASTRAZENECA-2018SF33873

PATIENT
  Age: 39 Year
  Sex: Female

DRUGS (42)
  1. CLONAZEPAM. [Concomitant]
     Active Substance: CLONAZEPAM
  2. METOCLOPRAMIDE. [Concomitant]
     Active Substance: METOCLOPRAMIDE
  3. CEFPODOXIME [Concomitant]
     Active Substance: CEFPODOXIME
  4. ONDANSETRON [Concomitant]
     Active Substance: ONDANSETRON
  5. CIPROFLOXACIN. [Concomitant]
     Active Substance: CIPROFLOXACIN
  6. ZOSYN [Concomitant]
     Active Substance: PIPERACILLIN SODIUM\TAZOBACTAM SODIUM
  7. DIPHENHYDRAMINE. [Concomitant]
     Active Substance: DIPHENHYDRAMINE
  8. PROMETHEGAN [Concomitant]
     Active Substance: PROMETHAZINE HYDROCHLORIDE
  9. PREDNISONE. [Concomitant]
     Active Substance: PREDNISONE
  10. ACETAMINOPHEN. [Concomitant]
     Active Substance: ACETAMINOPHEN
  11. ZOFRAN [Concomitant]
     Active Substance: ONDANSETRON HYDROCHLORIDE
  12. LORAZEPAM. [Concomitant]
     Active Substance: LORAZEPAM
  13. ZOLPIDEM [Concomitant]
     Active Substance: ZOLPIDEM\ZOLPIDEM TARTRATE
  14. OXYCODONE [Concomitant]
     Active Substance: OXYCODONE
  15. LOPERAMIDE [Concomitant]
     Active Substance: LOPERAMIDE
  16. CEPHALEXIN. [Concomitant]
     Active Substance: CEPHALEXIN
  17. LEVLEN [Concomitant]
     Active Substance: ETHINYL ESTRADIOL\LEVONORGESTREL
  18. ETOMIDATE. [Concomitant]
     Active Substance: ETOMIDATE
  19. AMOXICILLIN. [Concomitant]
     Active Substance: AMOXICILLIN
  20. ENTOCORT [Concomitant]
     Active Substance: BUDESONIDE
  21. NORCO [Concomitant]
     Active Substance: ACETAMINOPHEN\HYDROCODONE BITARTRATE
  22. POLYSPORIN [Concomitant]
     Active Substance: BACITRACIN ZINC\POLYMYXIN B SULFATE
  23. DILAUDID [Concomitant]
     Active Substance: HYDROMORPHONE HYDROCHLORIDE
  24. MIDAZOLAM [Concomitant]
     Active Substance: MIDAZOLAM HYDROCHLORIDE
  25. METRONIDAZOLE. [Concomitant]
     Active Substance: METRONIDAZOLE
  26. METHADONE [Concomitant]
     Active Substance: METHADONE HYDROCHLORIDE
  27. VICODIN [Concomitant]
     Active Substance: ACETAMINOPHEN\HYDROCODONE BITARTRATE
  28. HYDROMORPHONE [Concomitant]
     Active Substance: HYDROMORPHONE
  29. FLUMAZENIL. [Concomitant]
     Active Substance: FLUMAZENIL
  30. AZATHIOPRINE. [Concomitant]
     Active Substance: AZATHIOPRINE
  31. TEMAZEPAM. [Concomitant]
     Active Substance: TEMAZEPAM
  32. CELLCEPT [Concomitant]
     Active Substance: MYCOPHENOLATE MOFETIL\MYCOPHENOLATE MOFETIL HYDROCHLORIDE
  33. TRAZODONE [Concomitant]
     Active Substance: TRAZODONE HYDROCHLORIDE
  34. CITALOPRAM [Concomitant]
     Active Substance: CITALOPRAM HYDROBROMIDE
  35. AMBIEN [Concomitant]
     Active Substance: ZOLPIDEM TARTRATE
  36. NALOXONE [Concomitant]
     Active Substance: NALOXONE
  37. NITROFURANTOIN. [Concomitant]
     Active Substance: NITROFURANTOIN
  38. PRILOSEC [Suspect]
     Active Substance: OMEPRAZOLE MAGNESIUM
     Route: 048
     Dates: start: 1995, end: 2013
  39. PRILOSEC [Suspect]
     Active Substance: OMEPRAZOLE MAGNESIUM
     Route: 048
     Dates: start: 1997, end: 2007
  40. MORPHINE [Concomitant]
     Active Substance: MORPHINE
  41. FENTANYL CITRATE. [Concomitant]
     Active Substance: FENTANYL CITRATE
  42. LIDOCAIN [Concomitant]
     Active Substance: LIDOCAINE

REACTIONS (3)
  - Renal failure [Not Recovered/Not Resolved]
  - Chronic kidney disease [Not Recovered/Not Resolved]
  - Acute kidney injury [Unknown]

NARRATIVE: CASE EVENT DATE: 2007
